FAERS Safety Report 16207053 (Version 1)
Quarter: 2019Q2

REPORT INFORMATION
  Report Type: Report from Study
  Country: CH (occurrence: CH)
  Receive Date: 20190417
  Receipt Date: 20190417
  Transmission Date: 20190711
  Serious: Yes (Other)
  Sender: FDA-Public Use
  Company Number: CH-ROCHE-2300436

PATIENT

DRUGS (3)
  1. CAPECITABINE. [Suspect]
     Active Substance: CAPECITABINE
     Indication: RECTAL CANCER
     Dosage: 5 DAYS/WEEK
     Route: 048
  2. OXALIPLATIN. [Suspect]
     Active Substance: OXALIPLATIN
     Indication: RECTAL CANCER
     Route: 042
  3. 5-FLUOROURACIL [Suspect]
     Active Substance: FLUOROURACIL
     Indication: RECTAL CANCER
     Route: 042

REACTIONS (9)
  - Abdominal pain [Unknown]
  - Anal incontinence [Unknown]
  - Diarrhoea [Unknown]
  - Proctalgia [Unknown]
  - Proctitis [Unknown]
  - Toxicity to various agents [Unknown]
  - Cystitis [Unknown]
  - Gastrointestinal toxicity [Unknown]
  - Dermatitis [Unknown]
